APPROVED DRUG PRODUCT: PREDNISONE
Active Ingredient: PREDNISONE
Strength: 20MG
Dosage Form/Route: TABLET;ORAL
Application: A040392 | Product #001 | TE Code: AB
Applicant: PH HEALTH LTD
Approved: Feb 12, 2003 | RLD: No | RS: No | Type: RX